FAERS Safety Report 21707056 (Version 2)
Quarter: 2023Q2

REPORT INFORMATION
  Report Type: Spontaneous
  Country: US (occurrence: US)
  Receive Date: 20221209
  Receipt Date: 20230419
  Transmission Date: 20230722
  Serious: Yes (Hospitalization)
  Sender: FDA-Public Use
  Company Number: US-FreseniusKabi-FK202217321

PATIENT
  Age: 61 Year
  Sex: Male

DRUGS (3)
  1. HEPARIN SODIUM [Suspect]
     Active Substance: HEPARIN SODIUM
     Indication: Product used for unknown indication
     Route: 065
  2. XTANDI [Suspect]
     Active Substance: ENZALUTAMIDE
     Indication: Prostate cancer
     Dosage: 160 MG, ONCE DAILY?THERAPY DURATION: 5 MONTHS 17 DAYS
     Route: 048
     Dates: start: 20220921, end: 20230309
  3. XTANDI [Suspect]
     Active Substance: ENZALUTAMIDE
     Dosage: 160 MG, ONCE DAILY?THERAPY DURATION: 5 MONTHS 17 DAYS
     Route: 048
     Dates: start: 20220921, end: 20230309

REACTIONS (1)
  - Drug interaction [Unknown]
